FAERS Safety Report 19684923 (Version 1)
Quarter: 2021Q3

REPORT INFORMATION
  Report Type: Spontaneous
  Country: TR (occurrence: TR)
  Receive Date: 20210811
  Receipt Date: 20210811
  Transmission Date: 20211014
  Serious: Yes (Hospitalization)
  Sender: FDA-Public Use
  Company Number: TR-AXELLIA-003860

PATIENT
  Age: 2 Month
  Sex: Female

DRUGS (2)
  1. AMIKACIN. [Concomitant]
     Active Substance: AMIKACIN
     Indication: ACINETOBACTER INFECTION
  2. COLISTIN [Suspect]
     Active Substance: COLISTIN
     Indication: ACINETOBACTER INFECTION
     Dosage: DIVIDED INTO TWO EQUAL DOSES
     Route: 042

REACTIONS (1)
  - Bartter^s syndrome [Recovered/Resolved]
